FAERS Safety Report 5691775-2 (Version None)
Quarter: 2008Q1

REPORT INFORMATION
  Report Type: 
  Country: None (occurrence: None)
  Receive Date: 20080331
  Receipt Date: 20080321
  Transmission Date: 20080703
  Serious: Yes (Disabling)
  Sender: FDA-Public Use
  Company Number: 18778

PATIENT
  Sex: Male

DRUGS (6)
  1. LEUCOVORIN CALCIUM [Suspect]
     Indication: COLON CANCER METASTATIC
  2. LEUCOVORIN CALCIUM [Suspect]
     Indication: METASTASES TO LIVER
  3. FLUOROURACIL [Suspect]
     Indication: COLON CANCER METASTATIC
  4. FLUOROURACIL [Suspect]
     Indication: METASTASES TO LIVER
  5. OXALIPLATIN [Suspect]
     Indication: COLON CANCER METASTATIC
  6. OXALIPLATIN [Suspect]
     Indication: METASTASES TO LIVER

REACTIONS (7)
  - DEHYDRATION [None]
  - DIARRHOEA HAEMORRHAGIC [None]
  - DISEASE PROGRESSION [None]
  - DRUG TOXICITY [None]
  - MALAISE [None]
  - QUALITY OF LIFE DECREASED [None]
  - WEIGHT DECREASED [None]
